FAERS Safety Report 16755139 (Version 3)
Quarter: 2019Q3

REPORT INFORMATION
  Report Type: Spontaneous
  Country: US (occurrence: US)
  Receive Date: 20190829
  Receipt Date: 20190927
  Transmission Date: 20191005
  Serious: Yes (Hospitalization, Other)
  Sender: FDA-Public Use
  Company Number: US-GLAXOSMITHKLINE-US2019GSK156669

PATIENT
  Sex: Male

DRUGS (4)
  1. PREVACID [Suspect]
     Active Substance: LANSOPRAZOLE
     Dosage: 40 MG, QD
     Route: 065
  2. PREVACID [Suspect]
     Active Substance: LANSOPRAZOLE
     Indication: GASTROOESOPHAGEAL REFLUX DISEASE
     Dosage: 15 MG, QD
     Route: 065
  3. PREVACID [Suspect]
     Active Substance: LANSOPRAZOLE
     Indication: GASTROOESOPHAGEAL REFLUX DISEASE
     Dosage: 30 MG, QD
     Route: 048
  4. PREVACID [Suspect]
     Active Substance: LANSOPRAZOLE
     Dosage: 15 MG, QD
     Route: 048

REACTIONS (26)
  - Tubulointerstitial nephritis [Not Recovered/Not Resolved]
  - Renal injury [Unknown]
  - Haemodialysis [Unknown]
  - Kidney small [Unknown]
  - Chronic kidney disease [Unknown]
  - IgA nephropathy [Unknown]
  - Kidney infection [Unknown]
  - Nephrolithiasis [Unknown]
  - Azotaemia [Unknown]
  - Renal impairment [Unknown]
  - Dysuria [Unknown]
  - Proteinuria [Unknown]
  - Renal disorder [Unknown]
  - Nephropathy [Unknown]
  - Hypertensive nephropathy [Unknown]
  - Nephrogenic anaemia [Unknown]
  - Pyelonephritis [Unknown]
  - End stage renal disease [Not Recovered/Not Resolved]
  - Acute kidney injury [Unknown]
  - Nephrotic syndrome [Unknown]
  - Renal failure [Unknown]
  - Renal pain [Unknown]
  - Device dependence [Unknown]
  - Glomerulonephritis [Unknown]
  - Renal atrophy [Unknown]
  - Dialysis [Unknown]
